FAERS Safety Report 9355382 (Version 2)
Quarter: 2013Q3

REPORT INFORMATION
  Report Type: Spontaneous
  Country: FR (occurrence: FR)
  Receive Date: 20130619
  Receipt Date: 20130830
  Transmission Date: 20140515
  Serious: Yes (Other)
  Sender: FDA-Public Use
  Company Number: FR-JNJFOC-20130604107

PATIENT
  Age: 61 Year
  Sex: Male
  Weight: 52 kg

DRUGS (14)
  1. PREZISTA [Suspect]
     Indication: HIV INFECTION
     Route: 048
     Dates: start: 20130405
  2. NORVIR [Suspect]
     Indication: HIV INFECTION
     Route: 048
     Dates: start: 20130405
  3. METFORMINE [Concomitant]
     Indication: DIABETES MELLITUS
     Route: 048
  4. NORVASC [Concomitant]
     Indication: PRODUCT USED FOR UNKNOWN INDICATION
     Route: 065
  5. GLICLAZIDE [Concomitant]
     Indication: DIABETES MELLITUS
     Route: 048
  6. RAMIPRIL [Concomitant]
     Indication: CARDIAC FAILURE
     Route: 048
  7. RAMIPRIL [Concomitant]
     Indication: HYPERTENSION
     Route: 048
  8. BISOPROLOL [Concomitant]
     Indication: CARDIAC FAILURE
     Route: 048
  9. BISOPROLOL [Concomitant]
     Indication: HYPERTENSION
     Route: 048
  10. KARDEGIC [Concomitant]
     Indication: CARDIAC FAILURE
     Route: 048
  11. KARDEGIC [Concomitant]
     Indication: HYPERTENSION
     Route: 048
  12. CRESTOR [Concomitant]
     Indication: HYPERLIPIDAEMIA
     Route: 048
  13. KEPPRA [Concomitant]
     Indication: EPILEPSY
     Route: 048
  14. AMLODIPINE [Concomitant]
     Indication: HYPERTENSION
     Route: 048

REACTIONS (2)
  - Weight increased [Unknown]
  - Oedema [Recovered/Resolved]
